FAERS Safety Report 25324905 (Version 4)
Quarter: 2025Q2

REPORT INFORMATION
  Report Type: Report from Study
  Country: US (occurrence: US)
  Receive Date: 20250516
  Receipt Date: 20250527
  Transmission Date: 20250717
  Serious: Yes (Other)
  Sender: ABBVIE
  Company Number: US-ABBVIE-6284289

PATIENT
  Age: 79 Year
  Sex: Male

DRUGS (1)
  1. VYALEV [Suspect]
     Active Substance: FOSCARBIDOPA\FOSLEVODOPA
     Indication: Parkinson^s disease
     Route: 058
     Dates: start: 20250501

REACTIONS (3)
  - Deep brain stimulation [Unknown]
  - Nerve compression [Unknown]
  - Constipation [Recovering/Resolving]

NARRATIVE: CASE EVENT DATE: 20250501
